FAERS Safety Report 17339565 (Version 1)
Quarter: 2020Q1

REPORT INFORMATION
  Report Type: Spontaneous
  Country: US (occurrence: US)
  Receive Date: 20200128
  Receipt Date: 20200128
  Transmission Date: 20200409
  Serious: Yes (Hospitalization)
  Sender: FDA-Public Use
  Company Number: None

PATIENT
  Age: 86 Year
  Sex: Male
  Weight: 78 kg

DRUGS (12)
  1. ACETAMINOPHEN. [Concomitant]
     Active Substance: ACETAMINOPHEN
  2. TOPROL XL [Concomitant]
     Active Substance: METOPROLOL SUCCINATE
  3. MIRALAX [Concomitant]
     Active Substance: POLYETHYLENE GLYCOL 3350
  4. APIXABAN [Concomitant]
     Active Substance: APIXABAN
  5. GABAPENTIN. [Concomitant]
     Active Substance: GABAPENTIN
  6. ATORVASTATIN [Concomitant]
     Active Substance: ATORVASTATIN
  7. MEMANTINE. [Concomitant]
     Active Substance: MEMANTINE
  8. ANDEXANET ALFA [Suspect]
     Active Substance: ANDEXANET ALFA
     Indication: GASTROINTESTINAL HAEMORRHAGE
     Dosage: ?          OTHER FREQUENCY:LOW DOSE PROTOCOL;?
     Route: 040
     Dates: start: 20200120, end: 20200120
  9. AMLODIPINE [Concomitant]
     Active Substance: AMLODIPINE BESYLATE
  10. DOCUSATE [Concomitant]
     Active Substance: DOCUSATE
  11. FUROSEMIDE. [Concomitant]
     Active Substance: FUROSEMIDE
  12. LISINOPRIL. [Concomitant]
     Active Substance: LISINOPRIL

REACTIONS (1)
  - Pulmonary embolism [None]

NARRATIVE: CASE EVENT DATE: 20200120
